FAERS Safety Report 8496104-7 (Version None)
Quarter: 2012Q2

REPORT INFORMATION
  Report Type: 
  Country: None (occurrence: None)
  Receive Date: 20120629
  Receipt Date: 20120511
  Transmission Date: 20120825
  Serious: No
  Sender: FDA-Public Use
  Company Number: USA/USA/12/0024309

PATIENT
  Age: 75 Year
  Sex: Female
  Weight: 108.8633 kg

DRUGS (6)
  1. GLIPIZIDE [Concomitant]
  2. ONGLYZA [Concomitant]
  3. LITHIUM CARBONATE [Concomitant]
  4. NATEGLINIDE [Suspect]
     Indication: DIABETES MELLITUS
     Dosage: 60 MG, 3 IN 1 D, ORAL
     Route: 048
     Dates: start: 20120502, end: 20120503
  5. COGENTIN [Concomitant]
  6. PROLIXIN [Concomitant]

REACTIONS (4)
  - AMNESIA [None]
  - MYALGIA [None]
  - ABDOMINAL DISTENSION [None]
  - BLOOD GLUCOSE INCREASED [None]
